FAERS Safety Report 10050670 (Version 1)
Quarter: 2014Q2

REPORT INFORMATION
  Report Type: Spontaneous
  Country: US (occurrence: US)
  Receive Date: 20140401
  Receipt Date: 20140401
  Transmission Date: 20141212
  Serious: No
  Sender: FDA-Public Use
  Company Number: US-ASTRAZENECA-2013SE53335

PATIENT
  Age: 71 Year
  Sex: Male
  Weight: 65.8 kg

DRUGS (4)
  1. NEXIUM [Suspect]
     Indication: GASTROOESOPHAGEAL REFLUX DISEASE
     Route: 048
     Dates: start: 2002, end: 20130420
  2. NEXIUM [Suspect]
     Indication: GASTROOESOPHAGEAL REFLUX DISEASE
     Route: 048
     Dates: start: 2013
  3. OMEPRAZOLE [Suspect]
     Route: 048
  4. DEXILANT [Suspect]
     Route: 065
     Dates: start: 20130420

REACTIONS (5)
  - Glossodynia [Unknown]
  - Dysphagia [Unknown]
  - Oesophagitis [Unknown]
  - Fatigue [Unknown]
  - Dyspepsia [Unknown]
